FAERS Safety Report 12483320 (Version 1)
Quarter: 2016Q2

REPORT INFORMATION
  Report Type: Spontaneous
  Country: US (occurrence: US)
  Receive Date: 20160621
  Receipt Date: 20160621
  Transmission Date: 20160815
  Serious: No
  Sender: FDA-Public Use
  Company Number: US-ASTRAZENECA-2016SE43258

PATIENT
  Sex: Male
  Weight: 96.6 kg

DRUGS (2)
  1. LIPITOR GENERIC [Concomitant]
     Active Substance: ATORVASTATIN CALCIUM
     Indication: BLOOD CHOLESTEROL ABNORMAL
     Route: 048
  2. BYDUREON [Suspect]
     Active Substance: EXENATIDE
     Indication: BLOOD GLUCOSE ABNORMAL
     Route: 058
     Dates: start: 20160317

REACTIONS (2)
  - Intentional product misuse [Recovered/Resolved with Sequelae]
  - Injection site reaction [Not Recovered/Not Resolved]
